FAERS Safety Report 4750190-6 (Version None)
Quarter: 2005Q3

REPORT INFORMATION
  Report Type: 
  Country: None (occurrence: None)
  Receive Date: 20050818
  Receipt Date: 20050804
  Transmission Date: 20060218
  Serious: Yes (Hospitalization)
  Sender: FDA-Public Use
  Company Number: SUS1-2005-00606

PATIENT
  Age: 58 Year
  Sex: Female

DRUGS (1)
  1. ADDERALL XR 20 [Suspect]
     Indication: FATIGUE
     Dosage: 2-20 MG CAPSULES IN THE AM, ORAL
     Route: 048
     Dates: start: 20030101

REACTIONS (4)
  - DRUG WITHDRAWAL SYNDROME [None]
  - OFF LABEL USE [None]
  - PHARMACEUTICAL PRODUCT COMPLAINT [None]
  - REFUSAL OF TREATMENT BY PATIENT [None]
